FAERS Safety Report 13907924 (Version 1)
Quarter: 2017Q3

REPORT INFORMATION
  Report Type: Spontaneous
  Country: US (occurrence: US)
  Receive Date: 20170825
  Receipt Date: 20170825
  Transmission Date: 20171127
  Serious: No
  Sender: FDA-Public Use
  Company Number: US-ROCHE-1117069

PATIENT
  Sex: Female

DRUGS (2)
  1. NUTROPIN [Suspect]
     Active Substance: SOMATROPIN
     Indication: DEVELOPMENTAL DELAY
     Dosage: DRUG INDICATION: LACK OF EXPECTED NORMAL PHYSIOLOGICAL DEVELOPMENT IN CHILDHOOD, UNSPECIFIED
     Route: 065
     Dates: start: 199809
  2. NUTROPIN [Suspect]
     Active Substance: SOMATROPIN
     Indication: BODY HEIGHT BELOW NORMAL
     Dosage: DOSE INCREASED
     Route: 065

REACTIONS (3)
  - Diarrhoea [Unknown]
  - Influenza [Unknown]
  - Vomiting [Unknown]
